FAERS Safety Report 6269054-4 (Version None)
Quarter: 2009Q3

REPORT INFORMATION
  Report Type: 
  Country: None (occurrence: None)
  Receive Date: 20090715
  Receipt Date: 20090703
  Transmission Date: 20100115
  Serious: Yes (Other)
  Sender: FDA-Public Use
  Company Number: JP-PFIZER INC-2009237407

PATIENT

DRUGS (1)
  1. ZITHROMAX [Suspect]
     Route: 048

REACTIONS (3)
  - MUSCLE SPASMS [None]
  - SWEAT GLAND DISORDER [None]
  - VISUAL FIELD DEFECT [None]
